FAERS Safety Report 7392082-2 (Version None)
Quarter: 2011Q2

REPORT INFORMATION
  Report Type: 
  Country: None (occurrence: None)
  Receive Date: 20110404
  Receipt Date: 20110324
  Transmission Date: 20111010
  Serious: Yes (Death, Hospitalization)
  Sender: FDA-Public Use
  Company Number: A0772846A

PATIENT
  Age: 70 Year
  Sex: Female

DRUGS (17)
  1. PREMARIN [Concomitant]
  2. TIZANIDINE [Concomitant]
  3. CIPROFLOXACIN [Concomitant]
  4. CLONIDINE [Concomitant]
  5. METHOCARBAMOL [Concomitant]
  6. AVANDIA [Suspect]
     Indication: DIABETES MELLITUS
     Dosage: 8MG PER DAY
     Route: 048
     Dates: start: 20030514, end: 20070112
  7. MECLIZINE [Concomitant]
  8. DURAGESIC-50 [Concomitant]
  9. NORVASC [Concomitant]
  10. COZAAR [Concomitant]
  11. LOTREL [Concomitant]
  12. PREVACID [Concomitant]
  13. CEPHALEXIN [Concomitant]
  14. CARBATROL [Concomitant]
  15. PROMETHAZINE [Concomitant]
  16. ACIPHEX [Concomitant]
  17. CLOPIDOGREL [Concomitant]

REACTIONS (5)
  - BRADYCARDIA [None]
  - DEATH [None]
  - MYOCARDIAL INFARCTION [None]
  - CARDIAC FAILURE CONGESTIVE [None]
  - PNEUMONIA [None]
